FAERS Safety Report 8122421-6 (Version None)
Quarter: 2012Q1

REPORT INFORMATION
  Report Type: 
  Country: None (occurrence: None)
  Receive Date: 20120208
  Receipt Date: 20120130
  Transmission Date: 20120608
  Serious: Yes (Other)
  Sender: FDA-Public Use
  Company Number: DK-GLAXOSMITHKLINE-B0779769A

PATIENT
  Sex: Female

DRUGS (1)
  1. CLINDOXYL [Suspect]
     Indication: ACNE
     Route: 061
     Dates: start: 20120112, end: 20120115

REACTIONS (2)
  - DERMATITIS [None]
  - SKIN IRRITATION [None]
